FAERS Safety Report 21864102 (Version 1)
Quarter: 2023Q1

REPORT INFORMATION
  Report Type: Other
  Country: IN (occurrence: IN)
  Receive Date: 20230116
  Receipt Date: 20230116
  Transmission Date: 20230418
  Serious: Yes (Hospitalization, Other)
  Sender: FDA-Public Use
  Company Number: IN-DEXPHARM-20230057

PATIENT
  Age: 11 Year
  Sex: Male

DRUGS (2)
  1. DEXAMETHASONE [Suspect]
     Active Substance: DEXAMETHASONE
     Indication: Meningitis bacterial
     Dosage: DEXAMETHASONE 2 MG I.V THRICE DAILY FOR 3 DAYS
  2. CEFOTAXIME [Suspect]
     Active Substance: CEFOTAXIME SODIUM
     Indication: Meningitis bacterial
     Dosage: CEFOTAXIME 500 MG I.V TWICE DAILY FOR 10 DAYS.

REACTIONS (1)
  - Stevens-Johnson syndrome [Unknown]
